FAERS Safety Report 13097863 (Version 2)
Quarter: 2017Q4

REPORT INFORMATION
  Report Type: Spontaneous
  Country: CH (occurrence: CH)
  Receive Date: 20170109
  Receipt Date: 20171130
  Transmission Date: 20180320
  Serious: Yes (Hospitalization, Other)
  Sender: FDA-Public Use
  Company Number: CH-GLAXOSMITHKLINE-CH2016195849

PATIENT
  Age: 62 Year
  Sex: Male

DRUGS (5)
  1. FLECAINIDE [Interacting]
     Active Substance: FLECAINIDE
     Dosage: USUAL MEDICATIONS
     Route: 065
  2. FLECAINIDE [Interacting]
     Active Substance: FLECAINIDE
     Indication: SUICIDE ATTEMPT
     Dosage: ABOUT 25 PILLS OF FLECAINIDE 50 MG ; IN TOTAL
     Route: 065
  3. QUETIAPINE. [Suspect]
     Active Substance: QUETIAPINE
     Indication: SUICIDE ATTEMPT
     Dosage: UNKNOWN QUANTITY
     Route: 065
  4. WARFARIN [Concomitant]
     Active Substance: WARFARIN
     Indication: ANTICOAGULANT THERAPY
     Dosage: UNK
  5. LAMOTRIGINE. [Suspect]
     Active Substance: LAMOTRIGINE
     Indication: SUICIDE ATTEMPT
     Dosage: UNKNOWN QUANTITY
     Route: 065

REACTIONS (6)
  - QRS axis abnormal [Recovered/Resolved]
  - Mental status changes [Recovered/Resolved]
  - Drug interaction [Recovered/Resolved]
  - Overdose [Recovered/Resolved]
  - Electrocardiogram abnormal [Recovered/Resolved]
  - Atrioventricular block first degree [Recovered/Resolved]
